FAERS Safety Report 23947299 (Version 1)
Quarter: 2024Q2

REPORT INFORMATION
  Report Type: Spontaneous
  Country: US (occurrence: US)
  Receive Date: 20240606
  Receipt Date: 20240606
  Transmission Date: 20240716
  Serious: Yes (Hospitalization, Other)
  Sender: FDA-Public Use
  Company Number: US-AMGEN-USASP2024108464

PATIENT
  Sex: Female

DRUGS (1)
  1. REPATHA [Suspect]
     Active Substance: EVOLOCUMAB
     Indication: Product used for unknown indication
     Dosage: UNK UNK, Q2WK
     Route: 058
     Dates: start: 2022

REACTIONS (5)
  - Postoperative wound infection [Unknown]
  - Cardiac operation [Unknown]
  - Heart valve replacement [Unknown]
  - Coronary artery bypass [Unknown]
  - Incision site impaired healing [Not Recovered/Not Resolved]

NARRATIVE: CASE EVENT DATE: 20231001
